FAERS Safety Report 25186824 (Version 5)
Quarter: 2025Q3

REPORT INFORMATION
  Report Type: Report from Study
  Country: US (occurrence: US)
  Receive Date: 20250411
  Receipt Date: 20250705
  Transmission Date: 20251021
  Serious: Yes (Hospitalization, Other)
  Sender: UNITED THERAPEUTICS
  Company Number: US-UNITED THERAPEUTICS-UNT-2025-011249

PATIENT
  Age: 55 Year
  Sex: Male

DRUGS (8)
  1. TREPROSTINIL [Suspect]
     Active Substance: TREPROSTINIL
     Indication: Pulmonary arterial hypertension
     Dosage: 16 ?G, QID
     Dates: start: 20250404, end: 20250418
  2. TYVASO DPI [Suspect]
     Active Substance: TREPROSTINIL
     Indication: Pulmonary arterial hypertension
  3. TYVASO DPI [Suspect]
     Active Substance: TREPROSTINIL
     Indication: Pulmonary arterial hypertension
  4. TYVASO DPI [Suspect]
     Active Substance: TREPROSTINIL
     Indication: Pulmonary arterial hypertension
  5. UPTRAVI [Concomitant]
     Active Substance: SELEXIPAG
     Indication: Pulmonary arterial hypertension
  6. UPTRAVI [Concomitant]
     Active Substance: SELEXIPAG
     Dosage: 400 ?G, BID
     Dates: start: 202504
  7. SILDENAFIL CITRATE [Concomitant]
     Active Substance: SILDENAFIL CITRATE
     Indication: Product used for unknown indication
  8. SOTATERCEPT [Concomitant]
     Active Substance: SOTATERCEPT
     Indication: Product used for unknown indication

REACTIONS (6)
  - Hypoventilation [Unknown]
  - Hypertension [Recovering/Resolving]
  - Heart rate decreased [Recovering/Resolving]
  - Dyspnoea [Recovering/Resolving]
  - Dizziness [Recovering/Resolving]
  - Pain in jaw [Recovered/Resolved]

NARRATIVE: CASE EVENT DATE: 20250404
